FAERS Safety Report 9315405 (Version 2)
Quarter: 2013Q3

REPORT INFORMATION
  Report Type: Report from Study
  Country: US (occurrence: US)
  Receive Date: 20130529
  Receipt Date: 20130710
  Transmission Date: 20140515
  Serious: Yes (Other)
  Sender: FDA-Public Use
  Company Number: US-US-EMD SERONO, INC.-7213461

PATIENT
  Sex: Female
  Weight: 82 kg

DRUGS (2)
  1. REBIF [Suspect]
     Indication: MULTIPLE SCLEROSIS
     Route: 058
     Dates: start: 20050513
  2. INSULIN [Concomitant]
     Indication: DIABETES MELLITUS

REACTIONS (1)
  - Renal disorder [Recovering/Resolving]
